FAERS Safety Report 10688112 (Version 1)
Quarter: 2015Q1

REPORT INFORMATION
  Report Type: Report from Study
  Country: AU (occurrence: AU)
  Receive Date: 20150102
  Receipt Date: 20150102
  Transmission Date: 20150720
  Serious: Yes (Death, Other)
  Sender: FDA-Public Use
  Company Number: AU-CELGENE-AUS-2014124394

PATIENT

DRUGS (1)
  1. IMNOVID [Suspect]
     Active Substance: POMALIDOMIDE
     Indication: PLASMA CELL MYELOMA
     Route: 048

REACTIONS (9)
  - Death [Fatal]
  - Thrombocytopenia [Unknown]
  - Myocardial ischaemia [Unknown]
  - Pneumonia [Unknown]
  - Chest pain [Unknown]
  - Cerebral haemorrhage [Unknown]
  - Bone marrow failure [Unknown]
  - Cardiac arrest [Unknown]
  - Plasma cell myeloma [Unknown]
